FAERS Safety Report 12736854 (Version 1)
Quarter: 2016Q3

REPORT INFORMATION
  Report Type: Spontaneous
  Country: US (occurrence: US)
  Receive Date: 20160913
  Receipt Date: 20160913
  Transmission Date: 20161109
  Serious: No
  Sender: FDA-Public Use
  Company Number: US-TEVA-667984USA

PATIENT
  Age: 85 Year
  Sex: Female
  Weight: 51.3 kg

DRUGS (1)
  1. RISEDRONATE SODIUM DELAYED-RELEASE [Suspect]
     Active Substance: RISEDRONATE SODIUM
     Indication: OSTEOPOROSIS
     Dosage: ONCE A WEEK FOR 8 OR 9 WEEKS
     Route: 065
     Dates: start: 20160321

REACTIONS (2)
  - Arthralgia [Not Recovered/Not Resolved]
  - Gait disturbance [Unknown]

NARRATIVE: CASE EVENT DATE: 20160601
